FAERS Safety Report 10400647 (Version 5)
Quarter: 2015Q3

REPORT INFORMATION
  Report Type: Report from Study
  Country: US (occurrence: US)
  Receive Date: 20140821
  Receipt Date: 20150817
  Transmission Date: 20151125
  Serious: Yes (Other)
  Sender: FDA-Public Use
  Company Number: US-GILEAD-2014-0112610

PATIENT
  Age: 67 Year
  Sex: Female

DRUGS (1)
  1. AMBRISENTAN [Suspect]
     Active Substance: AMBRISENTAN
     Indication: PULMONARY ARTERIAL HYPERTENSION
     Dosage: 10 MG, QD
     Route: 065
     Dates: start: 20101008

REACTIONS (7)
  - Drug ineffective [Unknown]
  - Arthritis [Unknown]
  - Dyspnoea [Unknown]
  - Oedema [Unknown]
  - Fatigue [Unknown]
  - Cough [Unknown]
  - Exercise tolerance decreased [Unknown]
